FAERS Safety Report 4497199-8 (Version None)
Quarter: 2004Q4

REPORT INFORMATION
  Report Type: 
  Country: None (occurrence: None)
  Receive Date: 20041110
  Receipt Date: 20041102
  Transmission Date: 20050328
  Serious: Yes (Hospitalization)
  Sender: FDA-Public Use
  Company Number: PHNR2004AU01603

PATIENT
  Age: 60 Year
  Sex: Male

DRUGS (5)
  1. NEORAL [Suspect]
     Indication: RENAL TRANSPLANT
     Route: 048
     Dates: start: 20041001, end: 20041101
  2. PREDNISOLONE [Suspect]
  3. MYCOPHENOLIC ACID [Suspect]
     Indication: RENAL TRANSPLANT
  4. AZATHIOPRINE [Concomitant]
  5. VALTREX [Concomitant]

REACTIONS (4)
  - COMPLICATIONS OF TRANSPLANTED KIDNEY [None]
  - DIALYSIS [None]
  - DRUG TOXICITY [None]
  - PSYCHOTIC DISORDER [None]
